FAERS Safety Report 11192038 (Version 1)
Quarter: 2015Q2

REPORT INFORMATION
  Report Type: Spontaneous
  Country: US (occurrence: US)
  Receive Date: 20150616
  Receipt Date: 20150616
  Transmission Date: 20150821
  Serious: Yes (Hospitalization)
  Sender: FDA-Public Use
  Company Number: US-PFIZER INC-2015198138

PATIENT
  Age: 12 Year
  Sex: Female
  Weight: 60 kg

DRUGS (2)
  1. AMLODIPINE BESILATE [Suspect]
     Active Substance: AMLODIPINE BESYLATE
     Dosage: 240 MG, SINGLE
     Route: 048
  2. BENAZEPRIL [Suspect]
     Active Substance: BENAZEPRIL\BENAZEPRIL HYDROCHLORIDE
     Dosage: 480 MG, SINGLE
     Route: 048

REACTIONS (2)
  - Overdose [Unknown]
  - Toxicity to various agents [Unknown]
